FAERS Safety Report 16939939 (Version 2)
Quarter: 2025Q1

REPORT INFORMATION
  Report Type: Report from Study
  Country: CA (occurrence: CA)
  Receive Date: 20191021
  Receipt Date: 20250213
  Transmission Date: 20250409
  Serious: Yes (Other)
  Sender: ROCHE
  Company Number: CA-ROCHE-1909727

PATIENT
  Age: 39 Year
  Sex: Female
  Weight: 54.0 kg

DRUGS (13)
  1. AVASTIN [Suspect]
     Active Substance: BEVACIZUMAB
     Indication: Glioblastoma
     Route: 042
     Dates: start: 20170310, end: 20171109
  2. AVASTIN [Suspect]
     Active Substance: BEVACIZUMAB
     Route: 042
     Dates: start: 20170222
  3. AVASTIN [Suspect]
     Active Substance: BEVACIZUMAB
     Route: 042
     Dates: start: 20170719
  4. AVASTIN [Suspect]
     Active Substance: BEVACIZUMAB
     Route: 042
     Dates: start: 20180109
  5. AVASTIN [Suspect]
     Active Substance: BEVACIZUMAB
     Route: 042
     Dates: start: 20180124
  6. AVASTIN [Suspect]
     Active Substance: BEVACIZUMAB
     Route: 042
     Dates: start: 20180822
  7. AVASTIN [Suspect]
     Active Substance: BEVACIZUMAB
     Route: 042
     Dates: start: 20170803, end: 20180105
  8. AVASTIN [Suspect]
     Active Substance: BEVACIZUMAB
     Dosage: SINGLE INFUSION
     Route: 042
     Dates: start: 20180118
  9. AVASTIN [Suspect]
     Active Substance: BEVACIZUMAB
     Route: 042
     Dates: start: 20180201, end: 20180301
  10. AVASTIN [Suspect]
     Active Substance: BEVACIZUMAB
     Route: 042
     Dates: start: 20180906, end: 20181129
  11. AVASTIN [Suspect]
     Active Substance: BEVACIZUMAB
     Dosage: SINGLE INFUSION
     Route: 042
     Dates: start: 20181213, end: 20181213
  12. AVASTIN [Suspect]
     Active Substance: BEVACIZUMAB
     Route: 042
     Dates: start: 20190110
  13. LEVETIRACETAM [Concomitant]
     Active Substance: LEVETIRACETAM
     Indication: Product used for unknown indication
     Dates: start: 20170224

REACTIONS (34)
  - White blood cell count decreased [Unknown]
  - Mean cell volume increased [Unknown]
  - Platelet count decreased [Recovered/Resolved]
  - Neutrophil percentage increased [Unknown]
  - Monocyte percentage increased [Unknown]
  - Lymphocyte count decreased [Unknown]
  - Blood glucose decreased [Not Recovered/Not Resolved]
  - Neutrophil count decreased [Not Recovered/Not Resolved]
  - Alanine aminotransferase increased [Recovered/Resolved]
  - White blood cells urine positive [Not Recovered/Not Resolved]
  - Mean cell haemoglobin increased [Unknown]
  - Blood bicarbonate increased [Unknown]
  - Blood magnesium decreased [Unknown]
  - Red cell distribution width decreased [Unknown]
  - Monocyte count increased [Not Recovered/Not Resolved]
  - Abdominal pain [Recovered/Resolved]
  - Diarrhoea [Unknown]
  - Blood glucose decreased [Not Recovered/Not Resolved]
  - Mouth ulceration [Unknown]
  - Blood chloride decreased [Unknown]
  - Blood sodium decreased [Recovered/Resolved]
  - Stomatitis [Recovering/Resolving]
  - Red blood cell count decreased [Unknown]
  - Lymphocyte count abnormal [Not Recovered/Not Resolved]
  - Rhinorrhoea [Not Recovered/Not Resolved]
  - Oropharyngeal pain [Not Recovered/Not Resolved]
  - Eosinophil count increased [Unknown]
  - Iodine allergy [Unknown]
  - Gastrointestinal disorder [Unknown]
  - Blood alkaline phosphatase decreased [Unknown]
  - Protein urine present [Unknown]
  - Nausea [Not Recovered/Not Resolved]
  - Urinary tract infection bacterial [Unknown]
  - Urine abnormality [Unknown]

NARRATIVE: CASE EVENT DATE: 20170316
